FAERS Safety Report 5779498-2 (Version None)
Quarter: 2008Q2

REPORT INFORMATION
  Report Type: 
  Country: None (occurrence: None)
  Receive Date: 20080619
  Receipt Date: 20080604
  Transmission Date: 20081010
  Serious: Yes (Hospitalization)
  Sender: FDA-Public Use
  Company Number: JP-GENENTECH-259562

PATIENT
  Sex: Male
  Weight: 46.3 kg

DRUGS (9)
  1. TRASTUZUMAB [Suspect]
     Indication: GASTRIC CANCER
     Dosage: 278 MG, Q3W
     Route: 042
     Dates: start: 20080115
  2. CAPECITABINE [Suspect]
     Indication: GASTRIC CANCER
     Dosage: 3000 MG, D1-14/Q3W
     Route: 048
     Dates: start: 20080115, end: 20080522
  3. CISPLATIN [Suspect]
     Indication: GASTRIC CANCER
     Dosage: 121 MG, Q3W
     Route: 042
     Dates: start: 20080115, end: 20080522
  4. ZOLPIDEM TARTRATE [Concomitant]
     Indication: DRUG USE FOR UNKNOWN INDICATION
     Dates: start: 20071217, end: 20080406
  5. MAGNESIUM OXIDE [Concomitant]
     Indication: DRUG USE FOR UNKNOWN INDICATION
     Dates: start: 20080322, end: 20080407
  6. CALCIUM LACTATE [Concomitant]
     Indication: DRUG USE FOR UNKNOWN INDICATION
     Dates: start: 20080319, end: 20080407
  7. ALFACALCIDOL [Concomitant]
     Indication: DRUG USE FOR UNKNOWN INDICATION
     Dates: start: 20080401, end: 20080407
  8. CONCOMITANT DRUG [Concomitant]
     Indication: DRUG USE FOR UNKNOWN INDICATION
     Dosage: UNK, UNK
     Dates: start: 20080401
  9. VITAMIN B-12 [Concomitant]
     Indication: DRUG USE FOR UNKNOWN INDICATION
     Dates: start: 20080403

REACTIONS (4)
  - DISSEMINATED INTRAVASCULAR COAGULATION [None]
  - ILEUS PARALYTIC [None]
  - SEPSIS [None]
  - VENOUS THROMBOSIS [None]
